FAERS Safety Report 7357433-3 (Version None)
Quarter: 2011Q1

REPORT INFORMATION
  Report Type: 
  Country: None (occurrence: None)
  Receive Date: 20110317
  Receipt Date: 20110303
  Transmission Date: 20110831
  Serious: Yes (Hospitalization, Other)
  Sender: FDA-Public Use
  Company Number: PHEH2006US01251

PATIENT
  Sex: Female
  Weight: 81.632 kg

DRUGS (47)
  1. PROTONIX [Concomitant]
     Dosage: UNK / DAILY
  2. PERIOGARD [Concomitant]
  3. FENTANYL [Concomitant]
  4. CIPRO [Concomitant]
  5. SKELAXIN [Concomitant]
  6. PREMPRO [Concomitant]
  7. VIOXX [Suspect]
     Indication: RHEUMATOID ARTHRITIS
     Dosage: 50MG, UNK
     Dates: start: 20040101, end: 20040101
  8. NEXIUM [Concomitant]
  9. NEURONTIN [Concomitant]
  10. CHEMOTHERAPEUTICS NOS [Concomitant]
  11. COMBIVENT                               /GFR/ [Concomitant]
  12. ZITHROMAX [Concomitant]
  13. FOLATE SODIUM [Concomitant]
  14. CEFTRIAXONE [Concomitant]
  15. ZOMETA [Suspect]
     Indication: MULTIPLE MYELOMA
     Dosage: UNK,UNK
     Route: 042
     Dates: start: 20010101, end: 20050603
  16. PEN-VEE K [Concomitant]
  17. REGLAN [Concomitant]
  18. AUGMENTIN '125' [Concomitant]
  19. CLONIDINE [Concomitant]
  20. PHENERGAN [Concomitant]
  21. ELAVIL [Concomitant]
  22. KEFLEX [Concomitant]
     Dosage: 500 MG, UNK
  23. PLAQUENIL [Concomitant]
  24. CLINDAMYCIN [Concomitant]
  25. FLAGYL [Concomitant]
  26. CEFAZOLIN [Concomitant]
  27. RADIATION THERAPY [Concomitant]
  28. CLARINEX                                /DEN/ [Concomitant]
  29. PEPCID [Concomitant]
  30. LACTULOSE [Concomitant]
  31. FLEXERIL [Concomitant]
     Dosage: UNK
  32. MINERALS NOS [Concomitant]
  33. AMOXICILLIN [Concomitant]
  34. LEVAQUIN [Concomitant]
  35. DIFLUCAN [Concomitant]
  36. MULTI-VITAMINS [Concomitant]
  37. CELEBREX [Concomitant]
     Dosage: UNK / 2 X DAILY
  38. DURAGESIC-50 [Concomitant]
  39. HYDROMORPHONE [Concomitant]
  40. AREDIA [Suspect]
     Dosage: 90MG MONTHLY
     Route: 042
     Dates: start: 20010426
  41. QUININE [Concomitant]
  42. AMBIEN [Concomitant]
     Dosage: UNK
  43. BACTRIM [Concomitant]
  44. VITAMIN D [Concomitant]
  45. NASONEX [Concomitant]
  46. PROZAC [Concomitant]
  47. MAGNESIUM OXIDE [Concomitant]

REACTIONS (66)
  - ANTINUCLEAR ANTIBODY POSITIVE [None]
  - BONE MARROW FAILURE [None]
  - NECK PAIN [None]
  - SWELLING [None]
  - ORAL PUSTULE [None]
  - MOUTH ULCERATION [None]
  - STOMATITIS [None]
  - FAT TISSUE INCREASED [None]
  - NIGHT SWEATS [None]
  - ORAL CANDIDIASIS [None]
  - PERONEAL NERVE PALSY [None]
  - FIBROSIS [None]
  - SOMNOLENCE [None]
  - BRONCHITIS [None]
  - HYPOAESTHESIA [None]
  - RHEUMATOID ARTHRITIS [None]
  - RENAL FAILURE ACUTE [None]
  - PAIN IN JAW [None]
  - STAPHYLOCOCCAL INFECTION [None]
  - DENTAL DISCOMFORT [None]
  - RENAL FAILURE CHRONIC [None]
  - OSTEONECROSIS OF JAW [None]
  - URINARY TRACT INFECTION [None]
  - MUSCLE SPASMS [None]
  - EPICONDYLITIS [None]
  - DYSPHAGIA [None]
  - INTERVERTEBRAL DISC SPACE NARROWING [None]
  - ARTHROPATHY [None]
  - PAIN IN EXTREMITY [None]
  - CLOSTRIDIUM DIFFICILE COLITIS [None]
  - SINUSITIS [None]
  - MUSCULOSKELETAL PAIN [None]
  - MUSCULAR WEAKNESS [None]
  - ABSCESS ORAL [None]
  - EXOSTOSIS [None]
  - SPINAL CORD OEDEMA [None]
  - SKIN LESION [None]
  - DIARRHOEA [None]
  - ARTHRALGIA [None]
  - INTERVERTEBRAL DISC PROTRUSION [None]
  - OSTEOMYELITIS [None]
  - MASTICATION DISORDER [None]
  - ACQUIRED OESOPHAGEAL WEB [None]
  - BACK PAIN [None]
  - RENAL IMPAIRMENT [None]
  - NECK MASS [None]
  - ABSCESS [None]
  - FOOT FRACTURE [None]
  - MYELOMA RECURRENCE [None]
  - BONE LESION [None]
  - ASTHMA [None]
  - OSTEOARTHRITIS [None]
  - SPINAL OSTEOARTHRITIS [None]
  - JOINT SPRAIN [None]
  - CELLULITIS [None]
  - MULTIPLE SCLEROSIS [None]
  - TEMPERATURE INTOLERANCE [None]
  - NODULE [None]
  - CHOLELITHIASIS [None]
  - HIATUS HERNIA [None]
  - CHONDROMALACIA [None]
  - BURSITIS [None]
  - MYOFASCITIS [None]
  - UTERINE LEIOMYOMA [None]
  - DEPRESSION [None]
  - MYALGIA [None]
